FAERS Safety Report 6248533-X (Version None)
Quarter: 2009Q2

REPORT INFORMATION
  Report Type: 
  Country: None (occurrence: None)
  Receive Date: 20090624
  Receipt Date: 20090611
  Transmission Date: 20091009
  Serious: Yes (Other)
  Sender: FDA-Public Use
  Company Number: PHEH2009US06094

PATIENT
  Sex: Female

DRUGS (1)
  1. VISUDYNE [Suspect]

REACTIONS (5)
  - CONVULSION [None]
  - EXTRAVASATION [None]
  - HYPERVENTILATION [None]
  - INFUSION RELATED REACTION [None]
  - PHOTOSENSITIVITY REACTION [None]
